FAERS Safety Report 10799020 (Version 1)
Quarter: 2015Q1

REPORT INFORMATION
  Report Type: Spontaneous
  Country: US (occurrence: US)
  Receive Date: 20150216
  Receipt Date: 20150216
  Transmission Date: 20150721
  Serious: No
  Sender: FDA-Public Use
  Company Number: US-ALLERGAN-1404178US

PATIENT
  Age: 68 Year
  Sex: Female

DRUGS (2)
  1. RESTASIS [Suspect]
     Active Substance: CYCLOSPORINE
     Indication: DRY EYE
     Dosage: 2 GTT, BID
     Route: 047
     Dates: start: 201309
  2. EYE KOTE [Concomitant]
     Indication: DRY EYE
     Dosage: UNK

REACTIONS (4)
  - Drug ineffective [Unknown]
  - Photopsia [Unknown]
  - Visual acuity reduced [Unknown]
  - Visual impairment [Unknown]
